FAERS Safety Report 22672239 (Version 4)
Quarter: 2023Q4

REPORT INFORMATION
  Report Type: Report from Study
  Country: BR (occurrence: BR)
  Receive Date: 20230705
  Receipt Date: 20231113
  Transmission Date: 20240110
  Serious: Yes (Death, Life-Threatening, Hospitalization, Disabling, Other)
  Sender: FDA-Public Use
  Company Number: BR-ELI_LILLY_AND_COMPANY-BR202306012557

PATIENT
  Age: 58 Year
  Sex: Male
  Weight: 52 kg

DRUGS (12)
  1. PEMETREXED [Suspect]
     Active Substance: PEMETREXED
     Indication: Non-small cell lung cancer
     Dosage: 500 MG/M2, UNKNOWN
     Route: 042
     Dates: start: 20230308, end: 20230308
  2. PEMETREXED [Suspect]
     Active Substance: PEMETREXED
     Dosage: 500 MG/M2, SINGLE
     Route: 042
     Dates: start: 20230328, end: 20230328
  3. PEMETREXED [Suspect]
     Active Substance: PEMETREXED
     Dosage: 500 MG/M2, SINGLE
     Route: 042
     Dates: start: 20230418, end: 20230418
  4. PEMETREXED [Suspect]
     Active Substance: PEMETREXED
     Dosage: 500 MG/M2, SINGLE
     Route: 042
     Dates: start: 20230509, end: 20230509
  5. PEMETREXED [Suspect]
     Active Substance: PEMETREXED
     Dosage: 500 MG/M2, SINGLE
     Route: 042
     Dates: start: 20230530, end: 20230530
  6. CARBOPLATIN [Concomitant]
     Active Substance: CARBOPLATIN
     Indication: Non-small cell lung cancer
     Dosage: AUC 5, UNKNOWN
     Route: 042
     Dates: start: 20230308, end: 20230308
  7. CARBOPLATIN [Concomitant]
     Active Substance: CARBOPLATIN
     Dosage: AUC 5, UNKNOWN
     Route: 042
     Dates: start: 20230328, end: 20230328
  8. CARBOPLATIN [Concomitant]
     Active Substance: CARBOPLATIN
     Dosage: AUC 5, UNKNOWN
     Route: 042
     Dates: start: 20230418, end: 20230418
  9. CARBOPLATIN [Concomitant]
     Active Substance: CARBOPLATIN
     Dosage: AUC 5, UNKNOWN
     Route: 042
     Dates: start: 20230509, end: 20230509
  10. PREGABALIN [Concomitant]
     Active Substance: PREGABALIN
     Indication: Product used for unknown indication
     Dosage: UNK, UNKNOWN
     Route: 065
  11. DIPYRONE [Concomitant]
     Active Substance: DIPYRONE
     Indication: Product used for unknown indication
     Dosage: UNK, UNKNOWN
     Route: 065
  12. ACETAMINOPHEN\CODEINE PHOSPHATE [Concomitant]
     Active Substance: ACETAMINOPHEN\CODEINE PHOSPHATE
     Indication: Product used for unknown indication
     Dosage: UNK, UNKNOWN
     Route: 065

REACTIONS (4)
  - Septic shock [Fatal]
  - Febrile neutropenia [Recovered/Resolved]
  - Acute kidney injury [Recovered/Resolved]
  - Diarrhoea [Fatal]

NARRATIVE: CASE EVENT DATE: 20230602
